FAERS Safety Report 8250582-7 (Version None)
Quarter: 2012Q2

REPORT INFORMATION
  Report Type: 
  Country: None (occurrence: None)
  Receive Date: 20120402
  Receipt Date: 20120402
  Transmission Date: 20120825
  Serious: Yes (Hospitalization)
  Sender: FDA-Public Use
  Company Number: None

PATIENT
  Age: 4 Year
  Sex: Female
  Weight: 165.56 kg

DRUGS (2)
  1. VYVANSE [Suspect]
  2. LEXAPRO [Concomitant]

REACTIONS (5)
  - VOMITING [None]
  - TACHYCARDIA [None]
  - NO THERAPEUTIC RESPONSE [None]
  - AGITATION [None]
  - RESTLESSNESS [None]
